FAERS Safety Report 22108214 (Version 4)
Quarter: 2024Q3

REPORT INFORMATION
  Report Type: Spontaneous
  Country: CA (occurrence: CA)
  Receive Date: 20230317
  Receipt Date: 20240730
  Transmission Date: 20241017
  Serious: Yes (Congenital Anomaly)
  Sender: BRISTOL MYERS SQUIBB
  Company Number: CA-BRISTOL-MYERS SQUIBB COMPANY-2023-037706

PATIENT

DRUGS (527)
  1. ORENCIA [Suspect]
     Active Substance: ABATACEPT
     Indication: Product used for unknown indication
     Route: 064
  2. ORENCIA [Suspect]
     Active Substance: ABATACEPT
     Indication: Product used for unknown indication
     Route: 064
  3. ORENCIA [Suspect]
     Active Substance: ABATACEPT
     Route: 064
  4. ORENCIA [Suspect]
     Active Substance: ABATACEPT
     Route: 064
  5. ORENCIA [Suspect]
     Active Substance: ABATACEPT
     Route: 064
  6. ORENCIA [Suspect]
     Active Substance: ABATACEPT
     Route: 064
  7. ORENCIA [Suspect]
     Active Substance: ABATACEPT
     Route: 064
  8. ORENCIA [Suspect]
     Active Substance: ABATACEPT
     Route: 064
  9. ORENCIA [Suspect]
     Active Substance: ABATACEPT
     Indication: Product used for unknown indication
     Dosage: UNK
     Route: 064
  10. ORENCIA [Suspect]
     Active Substance: ABATACEPT
     Indication: Product used for unknown indication
     Route: 064
  11. DICLOFENAC DIETHYLAMINE [Concomitant]
     Active Substance: DICLOFENAC DIETHYLAMINE
     Indication: Product used for unknown indication
     Route: 064
  12. ACTEMRA [Concomitant]
     Active Substance: TOCILIZUMAB
     Indication: Product used for unknown indication
     Route: 064
  13. ACTEMRA [Concomitant]
     Active Substance: TOCILIZUMAB
     Route: 064
  14. ACTEMRA [Concomitant]
     Active Substance: TOCILIZUMAB
     Route: 064
  15. ACTEMRA [Concomitant]
     Active Substance: TOCILIZUMAB
     Route: 064
  16. ACTEMRA [Concomitant]
     Active Substance: TOCILIZUMAB
     Route: 064
  17. ACTEMRA [Concomitant]
     Active Substance: TOCILIZUMAB
     Route: 064
  18. ACTEMRA [Concomitant]
     Active Substance: TOCILIZUMAB
     Route: 064
  19. ACTEMRA [Concomitant]
     Active Substance: TOCILIZUMAB
     Route: 064
  20. ACTEMRA [Concomitant]
     Active Substance: TOCILIZUMAB
     Route: 064
  21. ACTEMRA [Concomitant]
     Active Substance: TOCILIZUMAB
     Route: 064
  22. ACTEMRA [Concomitant]
     Active Substance: TOCILIZUMAB
     Route: 064
  23. ACTEMRA [Concomitant]
     Active Substance: TOCILIZUMAB
     Route: 064
  24. ACTEMRA [Concomitant]
     Active Substance: TOCILIZUMAB
     Route: 064
  25. ACTEMRA [Concomitant]
     Active Substance: TOCILIZUMAB
     Route: 064
  26. ACTEMRA [Concomitant]
     Active Substance: TOCILIZUMAB
     Route: 064
  27. ACTEMRA [Concomitant]
     Active Substance: TOCILIZUMAB
     Route: 064
  28. ACTEMRA [Concomitant]
     Active Substance: TOCILIZUMAB
     Route: 064
  29. ARAVA [Concomitant]
     Active Substance: LEFLUNOMIDE
     Indication: Product used for unknown indication
     Dosage: UNK
     Route: 064
  30. ARAVA [Concomitant]
     Active Substance: LEFLUNOMIDE
     Dosage: UNK
     Route: 064
  31. ARAVA [Concomitant]
     Active Substance: LEFLUNOMIDE
     Dosage: UNK
     Route: 064
  32. ADALIMUMAB [Concomitant]
     Active Substance: ADALIMUMAB\ISOPROPYL ALCOHOL
     Indication: Product used for unknown indication
     Route: 064
  33. ADALIMUMAB [Concomitant]
     Active Substance: ADALIMUMAB\ISOPROPYL ALCOHOL
     Route: 064
  34. ADALIMUMAB [Concomitant]
     Active Substance: ADALIMUMAB\ISOPROPYL ALCOHOL
     Route: 064
  35. ADALIMUMAB [Concomitant]
     Active Substance: ADALIMUMAB\ISOPROPYL ALCOHOL
     Indication: Product used for unknown indication
     Dosage: SOLUTION SUCUTANEOUS
     Route: 064
  36. AZATHIOPRINE [Concomitant]
     Active Substance: AZATHIOPRINE
     Indication: Product used for unknown indication
     Route: 064
  37. CIMZIA [Concomitant]
     Active Substance: CERTOLIZUMAB PEGOL
     Indication: Product used for unknown indication
     Route: 064
  38. CIMZIA [Concomitant]
     Active Substance: CERTOLIZUMAB PEGOL
     Dosage: UNK
     Route: 064
  39. CIMZIA [Concomitant]
     Active Substance: CERTOLIZUMAB PEGOL
     Route: 064
  40. CIMZIA [Concomitant]
     Active Substance: CERTOLIZUMAB PEGOL
     Route: 064
  41. CIMZIA [Concomitant]
     Active Substance: CERTOLIZUMAB PEGOL
     Route: 064
  42. CIMZIA [Concomitant]
     Active Substance: CERTOLIZUMAB PEGOL
     Route: 064
  43. CIMZIA [Concomitant]
     Active Substance: CERTOLIZUMAB PEGOL
     Route: 064
  44. CIMZIA [Concomitant]
     Active Substance: CERTOLIZUMAB PEGOL
     Dosage: UNK
     Route: 064
  45. CERTOLIZUMAB PEGOL [Concomitant]
     Active Substance: CERTOLIZUMAB PEGOL
     Indication: Product used for unknown indication
     Route: 064
  46. CERTOLIZUMAB PEGOL [Concomitant]
     Active Substance: CERTOLIZUMAB PEGOL
     Route: 064
  47. CERTOLIZUMAB PEGOL [Concomitant]
     Active Substance: CERTOLIZUMAB PEGOL
     Route: 064
  48. ENBREL [Concomitant]
     Active Substance: BENZYL ALCOHOL\ETANERCEPT
     Indication: Product used for unknown indication
     Route: 064
  49. ENBREL [Concomitant]
     Active Substance: BENZYL ALCOHOL\ETANERCEPT
     Route: 064
  50. ENBREL [Concomitant]
     Active Substance: BENZYL ALCOHOL\ETANERCEPT
     Route: 064
  51. ENBREL [Concomitant]
     Active Substance: BENZYL ALCOHOL\ETANERCEPT
     Route: 064
  52. ENBREL [Concomitant]
     Active Substance: BENZYL ALCOHOL\ETANERCEPT
     Route: 064
  53. ENBREL [Concomitant]
     Active Substance: BENZYL ALCOHOL\ETANERCEPT
     Route: 064
  54. ENBREL [Concomitant]
     Active Substance: BENZYL ALCOHOL\ETANERCEPT
     Route: 064
  55. ENBREL [Concomitant]
     Active Substance: BENZYL ALCOHOL\ETANERCEPT
     Route: 064
  56. ERELZI [Concomitant]
     Active Substance: ETANERCEPT-SZZS
     Indication: Product used for unknown indication
     Dosage: UNK
     Route: 064
  57. ERELZI [Concomitant]
     Active Substance: ETANERCEPT-SZZS
     Dosage: 50 MILLIGRAM, QWK
     Route: 064
  58. ERELZI [Concomitant]
     Active Substance: ETANERCEPT-SZZS
     Route: 064
  59. ERELZI [Concomitant]
     Active Substance: ETANERCEPT-SZZS
     Route: 064
  60. ERELZI [Concomitant]
     Active Substance: ETANERCEPT-SZZS
     Route: 064
  61. ERELZI [Concomitant]
     Active Substance: ETANERCEPT-SZZS
     Route: 064
  62. ERELZI [Concomitant]
     Active Substance: ETANERCEPT-SZZS
     Route: 064
  63. HUMIRA [Concomitant]
     Active Substance: ADALIMUMAB
     Indication: Product used for unknown indication
     Route: 064
  64. HUMIRA [Concomitant]
     Active Substance: ADALIMUMAB
     Route: 064
  65. HUMIRA [Concomitant]
     Active Substance: ADALIMUMAB
     Route: 064
  66. HUMIRA [Concomitant]
     Active Substance: ADALIMUMAB
     Route: 064
  67. HUMIRA [Concomitant]
     Active Substance: ADALIMUMAB
     Route: 064
  68. HUMIRA [Concomitant]
     Active Substance: ADALIMUMAB
     Route: 064
  69. HUMIRA [Concomitant]
     Active Substance: ADALIMUMAB
     Route: 064
  70. HUMIRA [Concomitant]
     Active Substance: ADALIMUMAB
     Route: 064
  71. HUMIRA [Concomitant]
     Active Substance: ADALIMUMAB
     Route: 064
  72. HUMIRA [Concomitant]
     Active Substance: ADALIMUMAB
     Route: 064
  73. HUMIRA [Concomitant]
     Active Substance: ADALIMUMAB
     Dosage: SOLUTION SUBCUTANEOUS
     Route: 064
  74. HUMIRA [Concomitant]
     Active Substance: ADALIMUMAB
     Route: 064
  75. HUMIRA [Concomitant]
     Active Substance: ADALIMUMAB
     Route: 064
  76. METHOTREXATE [Concomitant]
     Active Substance: METHOTREXATE
     Indication: Product used for unknown indication
     Dosage: 20 MILLIGRAM
     Route: 064
  77. METHOTREXATE [Concomitant]
     Active Substance: METHOTREXATE
     Dosage: 20 MILLIGRAM, QWK
     Route: 064
  78. METHOTREXATE [Concomitant]
     Active Substance: METHOTREXATE
     Route: 064
  79. METHOTREXATE [Concomitant]
     Active Substance: METHOTREXATE
     Route: 064
  80. METHOTREXATE [Concomitant]
     Active Substance: METHOTREXATE
     Route: 064
  81. METHOTREXATE [Concomitant]
     Active Substance: METHOTREXATE
     Route: 064
  82. METHOTREXATE [Concomitant]
     Active Substance: METHOTREXATE
     Route: 064
  83. METHOTREXATE [Concomitant]
     Active Substance: METHOTREXATE
     Route: 064
  84. METHOTREXATE [Concomitant]
     Active Substance: METHOTREXATE
     Route: 064
  85. METHOTREXATE [Concomitant]
     Active Substance: METHOTREXATE
     Route: 064
  86. METHOTREXATE [Concomitant]
     Active Substance: METHOTREXATE
     Route: 064
  87. METHOTREXATE [Concomitant]
     Active Substance: METHOTREXATE
     Route: 064
  88. METHOTREXATE [Concomitant]
     Active Substance: METHOTREXATE
     Route: 064
  89. METHOTREXATE [Concomitant]
     Active Substance: METHOTREXATE
     Route: 064
  90. METHOTREXATE [Concomitant]
     Active Substance: METHOTREXATE
     Route: 064
  91. METHOTREXATE [Concomitant]
     Active Substance: METHOTREXATE
     Route: 064
  92. METHOTREXATE [Concomitant]
     Active Substance: METHOTREXATE
     Route: 064
  93. METHOTREXATE [Concomitant]
     Active Substance: METHOTREXATE
     Route: 064
  94. METHOTREXATE [Concomitant]
     Active Substance: METHOTREXATE
     Route: 064
  95. METHOTREXATE [Concomitant]
     Active Substance: METHOTREXATE
     Route: 064
  96. METHOTREXATE [Concomitant]
     Active Substance: METHOTREXATE
     Route: 064
  97. METHOTREXATE [Concomitant]
     Active Substance: METHOTREXATE
     Route: 064
  98. METHOTREXATE [Concomitant]
     Active Substance: METHOTREXATE
     Route: 064
  99. METHOTREXATE [Concomitant]
     Active Substance: METHOTREXATE
     Route: 064
  100. METHOTREXATE [Concomitant]
     Active Substance: METHOTREXATE
     Route: 064
  101. METHOTREXATE [Concomitant]
     Active Substance: METHOTREXATE
     Route: 064
  102. METHOTREXATE [Concomitant]
     Active Substance: METHOTREXATE
     Route: 064
  103. METHOTREXATE [Concomitant]
     Active Substance: METHOTREXATE
     Route: 064
  104. METHOTREXATE [Concomitant]
     Active Substance: METHOTREXATE
     Route: 064
  105. METHOTREXATE [Concomitant]
     Active Substance: METHOTREXATE
     Route: 064
  106. METHOTREXATE [Concomitant]
     Active Substance: METHOTREXATE
     Route: 064
  107. METHOTREXATE [Concomitant]
     Active Substance: METHOTREXATE
     Route: 064
  108. METHOTREXATE [Concomitant]
     Active Substance: METHOTREXATE
     Route: 064
  109. METHOTREXATE [Concomitant]
     Active Substance: METHOTREXATE
     Route: 064
  110. METHOTREXATE [Concomitant]
     Active Substance: METHOTREXATE
     Route: 064
  111. METHOTREXATE [Concomitant]
     Active Substance: METHOTREXATE
     Route: 064
  112. METHOTREXATE [Concomitant]
     Active Substance: METHOTREXATE
     Route: 064
  113. METHOTREXATE [Concomitant]
     Active Substance: METHOTREXATE
     Route: 064
  114. METHOTREXATE [Concomitant]
     Active Substance: METHOTREXATE
     Route: 064
  115. METHOTREXATE [Concomitant]
     Active Substance: METHOTREXATE
     Route: 064
  116. METHOTREXATE [Concomitant]
     Active Substance: METHOTREXATE
     Route: 064
  117. GOLIMUMAB [Concomitant]
     Active Substance: GOLIMUMAB
     Indication: Product used for unknown indication
     Route: 064
  118. GOLIMUMAB [Concomitant]
     Active Substance: GOLIMUMAB
     Route: 064
  119. GOLIMUMAB [Concomitant]
     Active Substance: GOLIMUMAB
     Route: 064
  120. INFLIXIMAB [Concomitant]
     Active Substance: INFLIXIMAB
     Indication: Product used for unknown indication
     Dosage: UNK
     Route: 064
  121. INFLIXIMAB [Concomitant]
     Active Substance: INFLIXIMAB
     Dosage: UNK
     Route: 064
  122. MINOCYCLINE HYDROCHLORIDE [Concomitant]
     Active Substance: MINOCYCLINE HYDROCHLORIDE
     Indication: Product used for unknown indication
     Route: 064
  123. OTEZLA [Concomitant]
     Active Substance: APREMILAST
     Indication: Product used for unknown indication
     Dosage: 3 MILLIGRAM, BID
     Route: 064
  124. OTEZLA [Concomitant]
     Active Substance: APREMILAST
     Dosage: UNK
     Route: 064
  125. OTEZLA [Concomitant]
     Active Substance: APREMILAST
     Route: 064
  126. OTEZLA [Concomitant]
     Active Substance: APREMILAST
     Route: 064
  127. OTEZLA [Concomitant]
     Active Substance: APREMILAST
     Route: 064
  128. OTEZLA [Concomitant]
     Active Substance: APREMILAST
     Route: 064
  129. RITUXAN [Concomitant]
     Active Substance: RITUXIMAB
     Indication: Product used for unknown indication
     Dosage: UNK
     Route: 064
  130. RITUXAN [Concomitant]
     Active Substance: RITUXIMAB
     Dosage: UNK
     Route: 064
  131. USTEKINUMAB [Concomitant]
     Active Substance: USTEKINUMAB
     Indication: Product used for unknown indication
     Route: 064
  132. USTEKINUMAB [Concomitant]
     Active Substance: USTEKINUMAB
     Dosage: UNK
     Route: 064
  133. USTEKINUMAB [Concomitant]
     Active Substance: USTEKINUMAB
     Dosage: UNK
     Route: 064
  134. USTEKINUMAB [Concomitant]
     Active Substance: USTEKINUMAB
     Route: 064
  135. REMICADE [Concomitant]
     Active Substance: INFLIXIMAB
     Indication: Product used for unknown indication
     Dosage: 400 MILLIGRAM
     Route: 064
  136. REMICADE [Concomitant]
     Active Substance: INFLIXIMAB
     Dosage: 5 MILLIGRAM/KILOGRAM
     Route: 064
  137. REMICADE [Concomitant]
     Active Substance: INFLIXIMAB
     Dosage: POWDER FOR SOLUTION INTRAVENOUS
     Route: 064
  138. REMICADE [Concomitant]
     Active Substance: INFLIXIMAB
     Dosage: 500 MILLIGRAM
     Route: 064
  139. REMICADE [Concomitant]
     Active Substance: INFLIXIMAB
     Dosage: POWDER FOR SOLUTION FOR INFUSION
     Route: 064
  140. REMICADE [Concomitant]
     Active Substance: INFLIXIMAB
     Route: 064
  141. REMICADE [Concomitant]
     Active Substance: INFLIXIMAB
     Route: 064
  142. REMICADE [Concomitant]
     Active Substance: INFLIXIMAB
     Route: 064
  143. REMICADE [Concomitant]
     Active Substance: INFLIXIMAB
     Route: 064
  144. REMICADE [Concomitant]
     Active Substance: INFLIXIMAB
     Route: 064
  145. REMICADE [Concomitant]
     Active Substance: INFLIXIMAB
     Dosage: POWDER FOR SOLUTION INTRAVENOUS
     Route: 064
  146. SIMPONI [Concomitant]
     Active Substance: GOLIMUMAB
     Indication: Product used for unknown indication
     Route: 064
  147. SIMPONI [Concomitant]
     Active Substance: GOLIMUMAB
     Route: 064
  148. SIMPONI [Concomitant]
     Active Substance: GOLIMUMAB
     Route: 064
  149. SIMPONI [Concomitant]
     Active Substance: GOLIMUMAB
     Route: 064
  150. SIMPONI [Concomitant]
     Active Substance: GOLIMUMAB
     Route: 064
  151. SIMPONI [Concomitant]
     Active Substance: GOLIMUMAB
     Route: 064
  152. SIMPONI [Concomitant]
     Active Substance: GOLIMUMAB
     Route: 064
  153. SIMPONI [Concomitant]
     Active Substance: GOLIMUMAB
     Route: 064
  154. SIMPONI [Concomitant]
     Active Substance: GOLIMUMAB
     Route: 064
  155. SIMPONI [Concomitant]
     Active Substance: GOLIMUMAB
     Route: 064
  156. SIMPONI [Concomitant]
     Active Substance: GOLIMUMAB
     Dosage: SOLUTION SUBCUTANEOUS
     Route: 064
  157. SIRUKUMAB [Concomitant]
     Active Substance: SIRUKUMAB
     Indication: Product used for unknown indication
     Dosage: UNK
     Route: 064
  158. SIRUKUMAB [Concomitant]
     Active Substance: SIRUKUMAB
     Route: 064
  159. STELARA [Concomitant]
     Active Substance: USTEKINUMAB
     Indication: Product used for unknown indication
     Route: 064
  160. STELARA [Concomitant]
     Active Substance: USTEKINUMAB
     Route: 064
  161. STELARA [Concomitant]
     Active Substance: USTEKINUMAB
     Route: 064
  162. STELARA [Concomitant]
     Active Substance: USTEKINUMAB
     Dosage: SOLUTION SUBCUTANEOUS
     Route: 064
  163. SULFASALAZINE [Concomitant]
     Active Substance: SULFASALAZINE
     Indication: Product used for unknown indication
     Route: 064
  164. SULFASALAZINE [Concomitant]
     Active Substance: SULFASALAZINE
     Route: 064
  165. SULFASALAZINE [Concomitant]
     Active Substance: SULFASALAZINE
     Route: 064
  166. SULFASALAZINE [Concomitant]
     Active Substance: SULFASALAZINE
     Route: 064
  167. SULFASALAZINE [Concomitant]
     Active Substance: SULFASALAZINE
     Route: 064
  168. SULFASALAZINE [Concomitant]
     Active Substance: SULFASALAZINE
     Route: 064
  169. SULFASALAZINE [Concomitant]
     Active Substance: SULFASALAZINE
     Route: 064
  170. SULFASALAZINE [Concomitant]
     Active Substance: SULFASALAZINE
     Route: 064
  171. SULFASALAZINE [Concomitant]
     Active Substance: SULFASALAZINE
     Route: 064
  172. SULFASALAZINE [Concomitant]
     Active Substance: SULFASALAZINE
     Route: 064
  173. SULFASALAZINE [Concomitant]
     Active Substance: SULFASALAZINE
     Route: 064
  174. SULFASALAZINE [Concomitant]
     Active Substance: SULFASALAZINE
     Route: 064
  175. SULFASALAZINE [Concomitant]
     Active Substance: SULFASALAZINE
     Route: 064
  176. SULFASALAZINE [Concomitant]
     Active Substance: SULFASALAZINE
     Route: 064
  177. SULFASALAZINE [Concomitant]
     Active Substance: SULFASALAZINE
     Route: 064
  178. SULFASALAZINE [Concomitant]
     Active Substance: SULFASALAZINE
     Route: 064
  179. SULFASALAZINE [Concomitant]
     Active Substance: SULFASALAZINE
     Route: 064
  180. SULFASALAZINE [Concomitant]
     Active Substance: SULFASALAZINE
     Route: 064
  181. SULFASALAZINE [Concomitant]
     Active Substance: SULFASALAZINE
     Route: 064
  182. SULFASALAZINE [Concomitant]
     Active Substance: SULFASALAZINE
     Route: 064
  183. SULFASALAZINE [Concomitant]
     Active Substance: SULFASALAZINE
     Route: 064
  184. SULFASALAZINE [Concomitant]
     Active Substance: SULFASALAZINE
     Route: 064
  185. SULFASALAZINE [Concomitant]
     Active Substance: SULFASALAZINE
     Route: 064
  186. SULFASALAZINE [Concomitant]
     Active Substance: SULFASALAZINE
     Route: 064
  187. SULFASALAZINE [Concomitant]
     Active Substance: SULFASALAZINE
     Route: 064
  188. SULFASALAZINE [Concomitant]
     Active Substance: SULFASALAZINE
     Route: 064
  189. SULFASALAZINE [Concomitant]
     Active Substance: SULFASALAZINE
     Route: 064
  190. SULFASALAZINE [Concomitant]
     Active Substance: SULFASALAZINE
     Route: 064
  191. XELJANZ [Concomitant]
     Active Substance: TOFACITINIB CITRATE
     Indication: Product used for unknown indication
     Dosage: 5 MG, 2 EVERY 1 DAYS
     Route: 064
  192. XELJANZ [Concomitant]
     Active Substance: TOFACITINIB CITRATE
     Dosage: 5 MG, 2 EVERY 1 DAYS
     Route: 064
  193. XELJANZ [Concomitant]
     Active Substance: TOFACITINIB CITRATE
     Route: 064
  194. XELJANZ [Concomitant]
     Active Substance: TOFACITINIB CITRATE
     Route: 064
  195. XELJANZ [Concomitant]
     Active Substance: TOFACITINIB CITRATE
     Route: 064
  196. XELJANZ [Concomitant]
     Active Substance: TOFACITINIB CITRATE
     Route: 064
  197. XELJANZ [Concomitant]
     Active Substance: TOFACITINIB CITRATE
     Dosage: 5 MG, 2 EVERI 1 DAYS
     Route: 064
  198. XELJANZ [Concomitant]
     Active Substance: TOFACITINIB CITRATE
     Route: 064
  199. XELJANZ [Concomitant]
     Active Substance: TOFACITINIB CITRATE
     Route: 064
  200. XELJANZ [Concomitant]
     Active Substance: TOFACITINIB CITRATE
     Route: 064
  201. XELJANZ [Concomitant]
     Active Substance: TOFACITINIB CITRATE
     Route: 064
  202. XELJANZ [Concomitant]
     Active Substance: TOFACITINIB CITRATE
     Route: 064
  203. XELJANZ [Concomitant]
     Active Substance: TOFACITINIB CITRATE
     Route: 064
  204. XELJANZ [Concomitant]
     Active Substance: TOFACITINIB CITRATE
     Route: 064
  205. XELJANZ [Concomitant]
     Active Substance: TOFACITINIB CITRATE
     Route: 064
  206. MINOCYCLINE [Concomitant]
     Active Substance: MINOCYCLINE HYDROCHLORIDE
     Indication: Product used for unknown indication
     Route: 064
  207. MINOCYCLINE [Concomitant]
     Active Substance: MINOCYCLINE HYDROCHLORIDE
     Dosage: UNK
     Route: 064
  208. COSENTYX [Concomitant]
     Active Substance: SECUKINUMAB
     Indication: Product used for unknown indication
     Route: 064
  209. COSENTYX [Concomitant]
     Active Substance: SECUKINUMAB
     Route: 064
  210. RITUXIMAB [Concomitant]
     Active Substance: RITUXIMAB
     Indication: Product used for unknown indication
     Dosage: UNK
     Route: 064
  211. RITUXIMAB [Concomitant]
     Active Substance: RITUXIMAB
     Dosage: UNK
     Route: 064
  212. RITUXIMAB [Concomitant]
     Active Substance: RITUXIMAB
     Route: 064
  213. RITUXIMAB [Concomitant]
     Active Substance: RITUXIMAB
     Route: 064
  214. RITUXIMAB [Concomitant]
     Active Substance: RITUXIMAB
     Dosage: UNK
     Route: 064
  215. RITUXIMAB [Concomitant]
     Active Substance: RITUXIMAB
     Dosage: UNK
     Route: 064
  216. RITUXIMAB [Concomitant]
     Active Substance: RITUXIMAB
     Dosage: UNK
     Route: 064
  217. RITUXIMAB [Concomitant]
     Active Substance: RITUXIMAB
     Dosage: UNK
     Route: 064
  218. RITUXIMAB [Concomitant]
     Active Substance: RITUXIMAB
     Route: 064
  219. RITUXIMAB [Concomitant]
     Active Substance: RITUXIMAB
     Route: 064
  220. HYDROXYCHLOROQUINE SULFATE [Concomitant]
     Active Substance: HYDROXYCHLOROQUINE SULFATE
     Indication: Product used for unknown indication
     Route: 064
  221. HYDROXYCHLOROQUINE SULFATE [Concomitant]
     Active Substance: HYDROXYCHLOROQUINE SULFATE
     Route: 064
  222. HYDROXYCHLOROQUINE SULFATE [Concomitant]
     Active Substance: HYDROXYCHLOROQUINE SULFATE
     Route: 064
  223. HYDROXYCHLOROQUINE SULFATE [Concomitant]
     Active Substance: HYDROXYCHLOROQUINE SULFATE
     Indication: Product used for unknown indication
     Dosage: 400 MILLIGRAM, QD
     Route: 064
  224. HYDROXYCHLOROQUINE SULFATE [Concomitant]
     Active Substance: HYDROXYCHLOROQUINE SULFATE
     Route: 064
  225. HYDROXYCHLOROQUINE SULFATE [Concomitant]
     Active Substance: HYDROXYCHLOROQUINE SULFATE
     Route: 064
  226. HYDROXYCHLOROQUINE SULFATE [Concomitant]
     Active Substance: HYDROXYCHLOROQUINE SULFATE
     Route: 064
  227. HYDROXYCHLOROQUINE SULFATE [Concomitant]
     Active Substance: HYDROXYCHLOROQUINE SULFATE
     Route: 064
  228. HYDROXYCHLOROQUINE SULFATE [Concomitant]
     Active Substance: HYDROXYCHLOROQUINE SULFATE
     Route: 064
  229. HYDROXYCHLOROQUINE SULFATE [Concomitant]
     Active Substance: HYDROXYCHLOROQUINE SULFATE
     Route: 064
  230. HYDROXYCHLOROQUINE SULFATE [Concomitant]
     Active Substance: HYDROXYCHLOROQUINE SULFATE
     Route: 064
  231. HYDROXYCHLOROQUINE SULFATE [Concomitant]
     Active Substance: HYDROXYCHLOROQUINE SULFATE
     Route: 064
  232. HYDROXYCHLOROQUINE SULFATE [Concomitant]
     Active Substance: HYDROXYCHLOROQUINE SULFATE
     Route: 064
  233. HYDROXYCHLOROQUINE SULFATE [Concomitant]
     Active Substance: HYDROXYCHLOROQUINE SULFATE
     Route: 064
  234. HYDROXYCHLOROQUINE SULFATE [Concomitant]
     Active Substance: HYDROXYCHLOROQUINE SULFATE
     Route: 064
  235. HYDROXYCHLOROQUINE SULFATE [Concomitant]
     Active Substance: HYDROXYCHLOROQUINE SULFATE
     Route: 064
  236. HYDROXYCHLOROQUINE SULFATE [Concomitant]
     Active Substance: HYDROXYCHLOROQUINE SULFATE
     Route: 064
  237. HYDROXYCHLOROQUINE SULFATE [Concomitant]
     Active Substance: HYDROXYCHLOROQUINE SULFATE
     Route: 064
  238. MORPHINE SULFATE [Concomitant]
     Active Substance: MORPHINE SULFATE
     Indication: Product used for unknown indication
     Route: 064
  239. LEFLUNOMIDE [Concomitant]
     Active Substance: LEFLUNOMIDE
     Indication: Product used for unknown indication
     Dosage: UNK
     Route: 064
  240. LEFLUNOMIDE [Concomitant]
     Active Substance: LEFLUNOMIDE
     Dosage: UNK
     Route: 064
  241. LEFLUNOMIDE [Concomitant]
     Active Substance: LEFLUNOMIDE
     Dosage: UNK
     Route: 064
  242. LEFLUNOMIDE [Concomitant]
     Active Substance: LEFLUNOMIDE
     Dosage: UNK
     Route: 064
  243. LEFLUNOMIDE [Concomitant]
     Active Substance: LEFLUNOMIDE
     Dosage: UNK
     Route: 064
  244. LEFLUNOMIDE [Concomitant]
     Active Substance: LEFLUNOMIDE
     Dosage: UNK
     Route: 064
  245. DOXYCYCLINE [Concomitant]
     Active Substance: DOXYCYCLINE\DOXYCYCLINE HYCLATE
     Indication: Product used for unknown indication
     Route: 064
  246. LEFLUNOMIDE [Concomitant]
     Active Substance: LEFLUNOMIDE
     Indication: Product used for unknown indication
     Route: 064
  247. LEFLUNOMIDE [Concomitant]
     Active Substance: LEFLUNOMIDE
     Route: 064
  248. PREDNISONE [Concomitant]
     Active Substance: PREDNISONE
     Indication: Product used for unknown indication
     Dosage: 40 MILLIGRAM
     Route: 064
  249. PREDNISONE [Concomitant]
     Active Substance: PREDNISONE
     Route: 064
  250. PREDNISONE [Concomitant]
     Active Substance: PREDNISONE
     Route: 064
  251. PREDNISONE [Concomitant]
     Active Substance: PREDNISONE
     Dosage: 40 MILLIGRAM
     Route: 064
  252. PREDNISONE [Concomitant]
     Active Substance: PREDNISONE
     Route: 064
  253. PREDNISONE [Concomitant]
     Active Substance: PREDNISONE
     Route: 064
  254. PREDNISONE [Concomitant]
     Active Substance: PREDNISONE
     Route: 064
  255. ASACOL [Concomitant]
     Active Substance: MESALAMINE
     Indication: Product used for unknown indication
     Route: 064
  256. CETIRIZINE [Concomitant]
     Active Substance: CETIRIZINE HYDROCHLORIDE
     Indication: Product used for unknown indication
     Dosage: UNK
     Route: 064
  257. CETIRIZINE [Concomitant]
     Active Substance: CETIRIZINE HYDROCHLORIDE
     Route: 064
  258. CETIRIZINE [Concomitant]
     Active Substance: CETIRIZINE HYDROCHLORIDE
     Route: 064
  259. CORTISONE ACETATE [Concomitant]
     Active Substance: CORTISONE ACETATE
     Indication: Product used for unknown indication
     Dosage: 25 MILLIGRAM
     Route: 064
  260. CORTISONE ACETATE [Concomitant]
     Active Substance: CORTISONE ACETATE
     Dosage: 25 MILLIGRAM
     Route: 064
  261. CORTISONE ACETATE [Concomitant]
     Active Substance: CORTISONE ACETATE
     Dosage: 25 MILLIGRAM
     Route: 064
  262. CORTISONE ACETATE [Concomitant]
     Active Substance: CORTISONE ACETATE
     Route: 064
  263. CORTISONE ACETATE [Concomitant]
     Active Substance: CORTISONE ACETATE
     Route: 064
  264. CORTISONE ACETATE [Concomitant]
     Active Substance: CORTISONE ACETATE
     Route: 064
  265. CORTISONE ACETATE [Concomitant]
     Active Substance: CORTISONE ACETATE
     Route: 064
  266. CORTISONE ACETATE [Concomitant]
     Active Substance: CORTISONE ACETATE
     Route: 064
  267. CORTISONE ACETATE [Concomitant]
     Active Substance: CORTISONE ACETATE
     Route: 064
  268. CORTISONE ACETATE [Concomitant]
     Active Substance: CORTISONE ACETATE
     Route: 064
  269. CORTISONE ACETATE [Concomitant]
     Active Substance: CORTISONE ACETATE
     Route: 064
  270. CORTISONE ACETATE [Concomitant]
     Active Substance: CORTISONE ACETATE
     Route: 064
  271. DESOXIMETASONE [Concomitant]
     Active Substance: DESOXIMETASONE
     Indication: Product used for unknown indication
     Route: 064
  272. DESOXIMETASONE [Concomitant]
     Active Substance: DESOXIMETASONE
     Route: 064
  273. DESOXIMETASONE [Concomitant]
     Active Substance: DESOXIMETASONE
     Route: 064
  274. DESOXIMETASONE [Concomitant]
     Active Substance: DESOXIMETASONE
     Route: 064
  275. DESOXIMETASONE [Concomitant]
     Active Substance: DESOXIMETASONE
     Route: 064
  276. DESOXIMETASONE [Concomitant]
     Active Substance: DESOXIMETASONE
     Route: 064
  277. DESOXIMETASONE [Concomitant]
     Active Substance: DESOXIMETASONE
     Route: 064
  278. DESOXIMETASONE [Concomitant]
     Active Substance: DESOXIMETASONE
     Route: 064
  279. DESOXIMETASONE [Concomitant]
     Active Substance: DESOXIMETASONE
     Route: 064
  280. DESOXIMETASONE [Concomitant]
     Active Substance: DESOXIMETASONE
     Route: 064
  281. DICLOFENAC [Concomitant]
     Active Substance: DICLOFENAC
     Indication: Product used for unknown indication
     Dosage: UNK
     Route: 064
  282. DICLOFENAC [Concomitant]
     Active Substance: DICLOFENAC
     Route: 064
  283. DICLOFENAC [Concomitant]
     Active Substance: DICLOFENAC
     Route: 064
  284. DICLOFENAC [Concomitant]
     Active Substance: DICLOFENAC
     Route: 064
  285. FOLIC ACID [Concomitant]
     Active Substance: FOLIC ACID
     Indication: Product used for unknown indication
     Route: 064
  286. FOLIC ACID [Concomitant]
     Active Substance: FOLIC ACID
     Route: 064
  287. FOLIC ACID [Concomitant]
     Active Substance: FOLIC ACID
     Route: 064
  288. FOLIC ACID [Concomitant]
     Active Substance: FOLIC ACID
     Route: 064
  289. FOLIC ACID [Concomitant]
     Active Substance: FOLIC ACID
     Route: 064
  290. FOLIC ACID [Concomitant]
     Active Substance: FOLIC ACID
     Route: 064
  291. FOLIC ACID [Concomitant]
     Active Substance: FOLIC ACID
     Route: 064
  292. FOLIC ACID [Concomitant]
     Active Substance: FOLIC ACID
     Route: 064
  293. FOLIC ACID [Concomitant]
     Active Substance: FOLIC ACID
     Route: 064
  294. FOLIC ACID [Concomitant]
     Active Substance: FOLIC ACID
     Route: 064
  295. FOLIC ACID [Concomitant]
     Active Substance: FOLIC ACID
     Route: 064
  296. FOLIC ACID [Concomitant]
     Active Substance: FOLIC ACID
     Route: 064
  297. FOLIC ACID [Concomitant]
     Active Substance: FOLIC ACID
     Route: 064
  298. FOLIC ACID [Concomitant]
     Active Substance: FOLIC ACID
     Route: 064
  299. FOLIC ACID [Concomitant]
     Active Substance: FOLIC ACID
     Route: 064
  300. FOLIC ACID [Concomitant]
     Active Substance: FOLIC ACID
     Route: 064
  301. FOLIC ACID [Concomitant]
     Active Substance: FOLIC ACID
     Route: 064
  302. FOLIC ACID [Concomitant]
     Active Substance: FOLIC ACID
     Route: 064
  303. FOSAMAX [Concomitant]
     Active Substance: ALENDRONATE SODIUM
     Indication: Product used for unknown indication
     Route: 064
  304. FOSAMAX [Concomitant]
     Active Substance: ALENDRONATE SODIUM
     Route: 064
  305. FOSAMAX [Concomitant]
     Active Substance: ALENDRONATE SODIUM
     Route: 064
  306. FOSAMAX [Concomitant]
     Active Substance: ALENDRONATE SODIUM
     Route: 064
  307. FOSAMAX [Concomitant]
     Active Substance: ALENDRONATE SODIUM
     Route: 064
  308. FOSAMAX [Concomitant]
     Active Substance: ALENDRONATE SODIUM
     Route: 064
  309. FOSAMAX [Concomitant]
     Active Substance: ALENDRONATE SODIUM
     Route: 064
  310. FOSAMAX [Concomitant]
     Active Substance: ALENDRONATE SODIUM
     Route: 064
  311. HYDROXYCHLOROQUINE [Concomitant]
     Active Substance: HYDROXYCHLOROQUINE
     Indication: Product used for unknown indication
     Route: 064
  312. HYDROXYCHLOROQUINE [Concomitant]
     Active Substance: HYDROXYCHLOROQUINE
     Route: 064
  313. HYDROXYCHLOROQUINE [Concomitant]
     Active Substance: HYDROXYCHLOROQUINE
     Route: 064
  314. HYDROXYCHLOROQUINE [Concomitant]
     Active Substance: HYDROXYCHLOROQUINE
     Route: 064
  315. HYDROXYCHLOROQUINE [Concomitant]
     Active Substance: HYDROXYCHLOROQUINE
     Route: 064
  316. HYDROXYCHLOROQUINE [Concomitant]
     Active Substance: HYDROXYCHLOROQUINE
     Route: 064
  317. HYDROXYCHLOROQUINE [Concomitant]
     Active Substance: HYDROXYCHLOROQUINE
     Route: 064
  318. HYDROXYCHLOROQUINE [Concomitant]
     Active Substance: HYDROXYCHLOROQUINE
     Route: 064
  319. HYDROXYCHLOROQUINE [Concomitant]
     Active Substance: HYDROXYCHLOROQUINE
     Route: 064
  320. HYDROXYCHLOROQUINE [Concomitant]
     Active Substance: HYDROXYCHLOROQUINE
     Route: 064
  321. HYDROXYCHLOROQUINE [Concomitant]
     Active Substance: HYDROXYCHLOROQUINE
     Route: 064
  322. HYDROXYCHLOROQUINE [Concomitant]
     Active Substance: HYDROXYCHLOROQUINE
     Route: 064
  323. HYDROXYCHLOROQUINE [Concomitant]
     Active Substance: HYDROXYCHLOROQUINE
     Route: 064
  324. HYDROXYCHLOROQUINE [Concomitant]
     Active Substance: HYDROXYCHLOROQUINE
     Route: 064
  325. KEVZARA [Concomitant]
     Active Substance: SARILUMAB
     Indication: Product used for unknown indication
     Route: 064
  326. PHTHALYLSULFATHIAZOLE [Concomitant]
     Active Substance: PHTHALYLSULFATHIAZOLE
     Indication: Product used for unknown indication
     Route: 064
  327. PHTHALYLSULFATHIAZOLE [Concomitant]
     Active Substance: PHTHALYLSULFATHIAZOLE
     Route: 064
  328. PREDNISONE [Concomitant]
     Active Substance: PREDNISONE
     Indication: Product used for unknown indication
     Route: 064
  329. PREDNISONE [Concomitant]
     Active Substance: PREDNISONE
     Route: 064
  330. PREDNISONE [Concomitant]
     Active Substance: PREDNISONE
     Route: 064
  331. PREDNISONE [Concomitant]
     Active Substance: PREDNISONE
     Route: 064
  332. PREDNISONE [Concomitant]
     Active Substance: PREDNISONE
     Route: 064
  333. PREDNISONE [Concomitant]
     Active Substance: PREDNISONE
     Route: 064
  334. PREDNISONE [Concomitant]
     Active Substance: PREDNISONE
     Route: 064
  335. PREDNISONE [Concomitant]
     Active Substance: PREDNISONE
     Route: 064
  336. PREDNISONE [Concomitant]
     Active Substance: PREDNISONE
     Route: 064
  337. PREDNISONE [Concomitant]
     Active Substance: PREDNISONE
     Route: 064
  338. PREDNISONE [Concomitant]
     Active Substance: PREDNISONE
     Route: 064
  339. PREDNISONE [Concomitant]
     Active Substance: PREDNISONE
     Route: 064
  340. PREDNISONE [Concomitant]
     Active Substance: PREDNISONE
     Route: 064
  341. PREDNISONE [Concomitant]
     Active Substance: PREDNISONE
     Route: 064
  342. PREDNISONE [Concomitant]
     Active Substance: PREDNISONE
     Route: 064
  343. PREDNISONE [Concomitant]
     Active Substance: PREDNISONE
     Route: 064
  344. PREDNISONE [Concomitant]
     Active Substance: PREDNISONE
     Route: 064
  345. PSEUDOEPHEDRINE HYDROCHLORIDE [Concomitant]
     Active Substance: PSEUDOEPHEDRINE HYDROCHLORIDE
     Indication: Product used for unknown indication
     Route: 064
  346. PSEUDOEPHEDRINE HYDROCHLORIDE [Concomitant]
     Active Substance: PSEUDOEPHEDRINE HYDROCHLORIDE
     Route: 064
  347. PSEUDOEPHEDRINE HYDROCHLORIDE [Concomitant]
     Active Substance: PSEUDOEPHEDRINE HYDROCHLORIDE
     Route: 064
  348. SECUKINUMAB [Concomitant]
     Active Substance: SECUKINUMAB
     Indication: Product used for unknown indication
     Route: 064
  349. TOCILIZUMAB [Concomitant]
     Active Substance: TOCILIZUMAB
     Indication: Product used for unknown indication
     Route: 064
  350. TOCILIZUMAB [Concomitant]
     Active Substance: TOCILIZUMAB
     Route: 064
  351. TOCILIZUMAB [Concomitant]
     Active Substance: TOCILIZUMAB
     Route: 064
  352. TOCILIZUMAB [Concomitant]
     Active Substance: TOCILIZUMAB
     Route: 064
  353. TOCILIZUMAB [Concomitant]
     Active Substance: TOCILIZUMAB
     Route: 064
  354. TOCILIZUMAB [Concomitant]
     Active Substance: TOCILIZUMAB
     Route: 064
  355. INFLIXIMAB [Concomitant]
     Active Substance: INFLIXIMAB
     Indication: Product used for unknown indication
     Dosage: UNK
     Route: 064
  356. INFLIXIMAB [Concomitant]
     Active Substance: INFLIXIMAB
     Route: 064
  357. LEFLUNOMIDE [Concomitant]
     Active Substance: LEFLUNOMIDE
     Indication: Product used for unknown indication
     Dosage: 20 MILLIGRAM, QD
     Route: 064
  358. LEFLUNOMIDE [Concomitant]
     Active Substance: LEFLUNOMIDE
     Dosage: 10 MILLIGRAM, QD
     Route: 064
  359. LEFLUNOMIDE [Concomitant]
     Active Substance: LEFLUNOMIDE
     Dosage: UNK
     Route: 064
  360. LEFLUNOMIDE [Concomitant]
     Active Substance: LEFLUNOMIDE
     Dosage: 20 MILLIGRAM
     Route: 064
  361. LEFLUNOMIDE [Concomitant]
     Active Substance: LEFLUNOMIDE
     Route: 064
  362. DILAUDID [Concomitant]
     Active Substance: HYDROMORPHONE HYDROCHLORIDE
     Indication: Product used for unknown indication
     Route: 064
  363. WELLBUTRIN [Concomitant]
     Active Substance: BUPROPION HYDROCHLORIDE
     Indication: Product used for unknown indication
     Route: 064
  364. WELLBUTRIN [Concomitant]
     Active Substance: BUPROPION HYDROCHLORIDE
     Dosage: TABLET (EXTENDED- RELEASE)
     Route: 064
  365. HYDROMORPHONE HCL [Concomitant]
     Active Substance: HYDROMORPHONE HYDROCHLORIDE
     Indication: Product used for unknown indication
     Dosage: UNK
     Route: 064
  366. HYDROMORPHONE HCL [Concomitant]
     Active Substance: HYDROMORPHONE HYDROCHLORIDE
     Route: 064
  367. BUPROPION HYDROCHLORIDE [Concomitant]
     Active Substance: BUPROPION HYDROCHLORIDE
     Indication: Product used for unknown indication
     Route: 064
  368. BUPROPION [Concomitant]
     Active Substance: BUPROPION
     Indication: Product used for unknown indication
     Route: 064
  369. SULFASALAZINE [Concomitant]
     Active Substance: SULFASALAZINE
     Indication: Product used for unknown indication
     Route: 064
  370. ALENDRONATE SODIUM [Concomitant]
     Active Substance: ALENDRONATE SODIUM
     Indication: Product used for unknown indication
     Route: 064
  371. ALENDRONATE SODIUM [Concomitant]
     Active Substance: ALENDRONATE SODIUM
     Route: 064
  372. ALENDRONATE SODIUM [Concomitant]
     Active Substance: ALENDRONATE SODIUM
     Route: 064
  373. ALENDRONATE SODIUM [Concomitant]
     Active Substance: ALENDRONATE SODIUM
     Route: 064
  374. ALENDRONATE SODIUM [Concomitant]
     Active Substance: ALENDRONATE SODIUM
     Route: 064
  375. ALENDRONIC ACID [Concomitant]
     Active Substance: ALENDRONIC ACID
     Indication: Product used for unknown indication
     Route: 064
  376. ALENDRONIC ACID [Concomitant]
     Active Substance: ALENDRONIC ACID
     Route: 064
  377. ALENDRONIC ACID [Concomitant]
     Active Substance: ALENDRONIC ACID
     Route: 064
  378. ALENDRONIC ACID [Concomitant]
     Active Substance: ALENDRONIC ACID
     Route: 064
  379. ALENDRONIC ACID [Concomitant]
     Active Substance: ALENDRONIC ACID
     Route: 064
  380. ALENDRONIC ACID [Concomitant]
     Active Substance: ALENDRONIC ACID
     Route: 064
  381. ARAVA [Concomitant]
     Active Substance: LEFLUNOMIDE
     Indication: Product used for unknown indication
     Dosage: UNK
     Route: 064
  382. ARAVA [Concomitant]
     Active Substance: LEFLUNOMIDE
     Dosage: UNK
     Route: 064
  383. ARAVA [Concomitant]
     Active Substance: LEFLUNOMIDE
     Dosage: UNK
     Route: 064
  384. ARAVA [Concomitant]
     Active Substance: LEFLUNOMIDE
     Dosage: UNK
     Route: 064
  385. ARAVA [Concomitant]
     Active Substance: LEFLUNOMIDE
     Dosage: UNK
     Route: 064
  386. ARAVA [Concomitant]
     Active Substance: LEFLUNOMIDE
     Dosage: UNK
     Route: 064
  387. CALCIUM [Concomitant]
     Active Substance: CALCIUM
     Indication: Product used for unknown indication
     Route: 064
  388. CALCIUM CARBONATE [Concomitant]
     Active Substance: CALCIUM CARBONATE
     Indication: Product used for unknown indication
     Route: 064
  389. CALCIUM GLUBIONATE [Concomitant]
     Active Substance: CALCIUM GLUBIONATE
     Indication: Product used for unknown indication
     Route: 064
  390. CALCIUM GLUBIONATE [Concomitant]
     Active Substance: CALCIUM GLUBIONATE
     Route: 064
  391. CALCIUM GLUBIONATE [Concomitant]
     Active Substance: CALCIUM GLUBIONATE
     Route: 064
  392. CETIRIZINE HYDROCHLORIDE [Concomitant]
     Active Substance: CETIRIZINE HYDROCHLORIDE
     Indication: Product used for unknown indication
     Dosage: UNK
     Route: 064
  393. CETIRIZINE HYDROCHLORIDE [Concomitant]
     Active Substance: CETIRIZINE HYDROCHLORIDE
     Dosage: UNK
     Route: 064
  394. CETIRIZINE HYDROCHLORIDE [Concomitant]
     Active Substance: CETIRIZINE HYDROCHLORIDE
     Route: 064
  395. CETIRIZINE HYDROCHLORIDE [Concomitant]
     Active Substance: CETIRIZINE HYDROCHLORIDE
     Route: 064
  396. CETIRIZINE HYDROCHLORIDE [Concomitant]
     Active Substance: CETIRIZINE HYDROCHLORIDE
     Route: 064
  397. CETIRIZINE HYDROCHLORIDE [Concomitant]
     Active Substance: CETIRIZINE HYDROCHLORIDE
     Route: 064
  398. CETIRIZINE HYDROCHLORIDE [Concomitant]
     Active Substance: CETIRIZINE HYDROCHLORIDE
     Route: 064
  399. CETIRIZINE HYDROCHLORIDE [Concomitant]
     Active Substance: CETIRIZINE HYDROCHLORIDE
     Route: 064
  400. CETIRIZINE HYDROCHLORIDE [Concomitant]
     Active Substance: CETIRIZINE HYDROCHLORIDE
     Route: 064
  401. DICLOFENAC POTASSIUM [Concomitant]
     Active Substance: DICLOFENAC POTASSIUM
     Indication: Product used for unknown indication
     Route: 064
  402. DICLOFENAC SODIUM [Concomitant]
     Active Substance: DICLOFENAC\DICLOFENAC SODIUM
     Indication: Product used for unknown indication
     Route: 064
  403. DICLOFENAC SODIUM [Concomitant]
     Active Substance: DICLOFENAC\DICLOFENAC SODIUM
     Route: 064
  404. DICLOFENAC SODIUM [Concomitant]
     Active Substance: DICLOFENAC\DICLOFENAC SODIUM
     Route: 064
  405. DICLOFENAC SODIUM [Concomitant]
     Active Substance: DICLOFENAC\DICLOFENAC SODIUM
     Route: 064
  406. DICLOFENAC SODIUM [Concomitant]
     Active Substance: DICLOFENAC\DICLOFENAC SODIUM
     Route: 064
  407. DICLOFENAC SODIUM [Concomitant]
     Active Substance: DICLOFENAC\DICLOFENAC SODIUM
     Route: 064
  408. HYDROCORTISONE ACETATE [Concomitant]
     Active Substance: HYDROCORTISONE ACETATE
     Indication: Product used for unknown indication
     Route: 064
  409. PANTOPRAZOLE [Concomitant]
     Active Substance: PANTOPRAZOLE
     Indication: Product used for unknown indication
     Route: 064
  410. QUETIAPINE FUMARATE [Concomitant]
     Active Substance: QUETIAPINE FUMARATE
     Indication: Product used for unknown indication
     Route: 064
  411. RAMIPRIL [Concomitant]
     Active Substance: RAMIPRIL
     Indication: Product used for unknown indication
     Route: 064
  412. RAMIPRIL [Concomitant]
     Active Substance: RAMIPRIL
     Route: 064
  413. VITAMIN C [Concomitant]
     Active Substance: ASCORBIC ACID
     Indication: Product used for unknown indication
     Route: 064
  414. VITAMIN C [Concomitant]
     Active Substance: ASCORBIC ACID
     Route: 064
  415. VITAMIN D3 [Concomitant]
     Active Substance: CHOLECALCIFEROL
     Indication: Product used for unknown indication
     Route: 064
  416. VITAMIN D3 [Concomitant]
     Active Substance: CHOLECALCIFEROL
     Route: 064
  417. VITAMIN D3 [Concomitant]
     Active Substance: CHOLECALCIFEROL
     Route: 064
  418. ACETAMINOPHEN [Concomitant]
     Active Substance: ACETAMINOPHEN
     Indication: Product used for unknown indication
     Route: 064
  419. ACETAMINOPHEN [Concomitant]
     Active Substance: ACETAMINOPHEN
     Route: 064
  420. ACETAMINOPHEN [Concomitant]
     Active Substance: ACETAMINOPHEN
     Route: 064
  421. CAFFEINE CITRATE [Concomitant]
     Active Substance: CAFFEINE CITRATE
     Indication: Product used for unknown indication
     Route: 064
  422. CODEINE [Concomitant]
     Active Substance: CODEINE
     Indication: Product used for unknown indication
     Route: 064
  423. DIPHENHYDRAMINE HYDROCHLORIDE [Concomitant]
     Active Substance: DIPHENHYDRAMINE HYDROCHLORIDE
     Indication: Product used for unknown indication
     Route: 064
  424. IBUPROFEN [Concomitant]
     Active Substance: IBUPROFEN
     Indication: Product used for unknown indication
     Route: 064
  425. LISINOPRIL [Concomitant]
     Active Substance: LISINOPRIL
     Indication: Product used for unknown indication
     Route: 064
  426. LISINOPRIL [Concomitant]
     Active Substance: LISINOPRIL
     Route: 064
  427. METHYLPREDNISOLONE SODIUM SUCCINATE [Concomitant]
     Active Substance: METHYLPREDNISOLONE SODIUM SUCCINATE
     Indication: Product used for unknown indication
     Route: 064
  428. PSEUDOEPHEDRINE [Concomitant]
     Active Substance: PSEUDOEPHEDRINE
     Indication: Product used for unknown indication
     Route: 064
  429. CETIRIZINE HYDROCHLORIDE\PSEUDOEPHEDRINE HYDROCHLORIDE [Concomitant]
     Active Substance: CETIRIZINE HYDROCHLORIDE\PSEUDOEPHEDRINE HYDROCHLORIDE
     Indication: Product used for unknown indication
     Route: 064
  430. CETIRIZINE HYDROCHLORIDE\PSEUDOEPHEDRINE HYDROCHLORIDE [Concomitant]
     Active Substance: CETIRIZINE HYDROCHLORIDE\PSEUDOEPHEDRINE HYDROCHLORIDE
     Route: 064
  431. CETIRIZINE HYDROCHLORIDE\PSEUDOEPHEDRINE HYDROCHLORIDE [Concomitant]
     Active Substance: CETIRIZINE HYDROCHLORIDE\PSEUDOEPHEDRINE HYDROCHLORIDE
     Route: 064
  432. CETIRIZINE HYDROCHLORIDE\PSEUDOEPHEDRINE HYDROCHLORIDE [Concomitant]
     Active Substance: CETIRIZINE HYDROCHLORIDE\PSEUDOEPHEDRINE HYDROCHLORIDE
     Route: 064
  433. CETIRIZINE HYDROCHLORIDE\PSEUDOEPHEDRINE HYDROCHLORIDE [Concomitant]
     Active Substance: CETIRIZINE HYDROCHLORIDE\PSEUDOEPHEDRINE HYDROCHLORIDE
     Route: 064
  434. CETIRIZINE HYDROCHLORIDE\PSEUDOEPHEDRINE HYDROCHLORIDE [Concomitant]
     Active Substance: CETIRIZINE HYDROCHLORIDE\PSEUDOEPHEDRINE HYDROCHLORIDE
     Route: 064
  435. CETIRIZINE HYDROCHLORIDE\PSEUDOEPHEDRINE HYDROCHLORIDE [Concomitant]
     Active Substance: CETIRIZINE HYDROCHLORIDE\PSEUDOEPHEDRINE HYDROCHLORIDE
     Dosage: TABLET (EXTEND DED- RELEASE)
     Route: 064
  436. PREDNISONE [Concomitant]
     Active Substance: PREDNISONE
     Indication: Product used for unknown indication
     Route: 064
  437. PREDNISONE [Concomitant]
     Active Substance: PREDNISONE
     Route: 064
  438. PREDNISONE [Concomitant]
     Active Substance: PREDNISONE
     Route: 064
  439. CALCIUM GLUCONATE [Concomitant]
     Active Substance: CALCIUM GLUCONATE
     Indication: Product used for unknown indication
     Route: 064
  440. CETIRIZINE HYDROCHLORIDE AND PSEUDOEPHEDRINE HYDROCHLORIDE [Concomitant]
     Active Substance: CETIRIZINE HYDROCHLORIDE\PSEUDOEPHEDRINE HYDROCHLORIDE
     Indication: Product used for unknown indication
     Route: 064
  441. LEVOCETIRIZINE [Concomitant]
     Active Substance: LEVOCETIRIZINE
     Indication: Product used for unknown indication
     Route: 064
  442. HYALURONIDASE (HUMAN RECOMBINANT)\RITUXIMAB [Concomitant]
     Active Substance: HYALURONIDASE (HUMAN RECOMBINANT)\RITUXIMAB
     Indication: Product used for unknown indication
     Route: 064
  443. HYALURONIDASE (HUMAN RECOMBINANT)\RITUXIMAB [Concomitant]
     Active Substance: HYALURONIDASE (HUMAN RECOMBINANT)\RITUXIMAB
     Route: 064
  444. HYALURONIDASE (HUMAN RECOMBINANT)\RITUXIMAB [Concomitant]
     Active Substance: HYALURONIDASE (HUMAN RECOMBINANT)\RITUXIMAB
     Route: 064
  445. TOPICORT [Concomitant]
     Active Substance: DESOXIMETASONE
     Indication: Product used for unknown indication
     Route: 064
  446. TOFACITINIB CITRATE [Concomitant]
     Active Substance: TOFACITINIB CITRATE
     Indication: Product used for unknown indication
     Route: 064
  447. TOFACITINIB CITRATE [Concomitant]
     Active Substance: TOFACITINIB CITRATE
     Route: 064
  448. ERGOCALCIFEROL [Concomitant]
     Active Substance: ERGOCALCIFEROL
     Indication: Product used for unknown indication
     Route: 064
  449. GLUCOSAMINE [Concomitant]
     Active Substance: GLUCOSAMINE
     Indication: Product used for unknown indication
     Route: 064
  450. HYDROCORTISONE [Concomitant]
     Active Substance: HYDROCORTISONE\HYDROCORTISONE ACETATE
     Indication: Product used for unknown indication
     Route: 064
  451. HYDROCORTISONE [Concomitant]
     Active Substance: HYDROCORTISONE\HYDROCORTISONE ACETATE
     Route: 064
  452. HYDROCORTISONE [Concomitant]
     Active Substance: HYDROCORTISONE\HYDROCORTISONE ACETATE
     Route: 064
  453. HYDROCORTISONE [Concomitant]
     Active Substance: HYDROCORTISONE\HYDROCORTISONE ACETATE
     Route: 064
  454. HYDROCORTISONE [Concomitant]
     Active Substance: HYDROCORTISONE\HYDROCORTISONE ACETATE
     Route: 064
  455. HYDROCORTISONE [Concomitant]
     Active Substance: HYDROCORTISONE\HYDROCORTISONE ACETATE
     Route: 064
  456. HYDROCORTISONE [Concomitant]
     Active Substance: HYDROCORTISONE\HYDROCORTISONE ACETATE
     Route: 064
  457. HYDROCORTISONE [Concomitant]
     Active Substance: HYDROCORTISONE\HYDROCORTISONE ACETATE
     Route: 064
  458. ISOPROPYL ALCOHOL [Concomitant]
     Active Substance: ISOPROPYL ALCOHOL
     Indication: Product used for unknown indication
     Route: 064
  459. LANSOPRAZOLE [Concomitant]
     Active Substance: LANSOPRAZOLE
     Indication: Product used for unknown indication
     Route: 064
  460. LORAZEPAM [Concomitant]
     Active Substance: LORAZEPAM
     Indication: Product used for unknown indication
     Route: 064
  461. OXYCODONE HYDROCHLORIDE [Concomitant]
     Active Substance: OXYCODONE HYDROCHLORIDE
     Indication: Product used for unknown indication
     Route: 064
  462. OXYCODONE TEREPHTHALATE [Concomitant]
     Active Substance: OXYCODONE TEREPHTHALATE
     Indication: Product used for unknown indication
     Route: 064
  463. DIETARY SUPPLEMENT [Concomitant]
     Active Substance: DIETARY SUPPLEMENT
     Indication: Product used for unknown indication
     Route: 064
  464. CETIRIZINE HYDROCHLORIDE [Concomitant]
     Active Substance: CETIRIZINE HYDROCHLORIDE
     Indication: Product used for unknown indication
     Route: 064
  465. HYDROXYCHLOROQUINE DIPHOSPHATE [Concomitant]
     Active Substance: HYDROXYCHLOROQUINE DIPHOSPHATE
     Indication: Product used for unknown indication
     Route: 064
  466. HYDROXYCHLOROQUINE DIPHOSPHATE [Concomitant]
     Active Substance: HYDROXYCHLOROQUINE DIPHOSPHATE
     Route: 064
  467. SOLU-MEDROL [Concomitant]
     Active Substance: METHYLPREDNISOLONE SODIUM SUCCINATE
     Indication: Product used for unknown indication
     Route: 064
  468. STELARA [Concomitant]
     Active Substance: USTEKINUMAB
     Indication: Product used for unknown indication
     Route: 064
  469. STELARA [Concomitant]
     Active Substance: USTEKINUMAB
     Route: 064
  470. STELARA [Concomitant]
     Active Substance: USTEKINUMAB
     Route: 064
  471. SULFATHIAZOLE [Concomitant]
     Active Substance: SULFATHIAZOLE
     Indication: Product used for unknown indication
     Route: 064
  472. TOPICORT [Concomitant]
     Active Substance: DESOXIMETASONE
     Indication: Product used for unknown indication
     Route: 064
  473. TYLENOL [Concomitant]
     Active Substance: ACETAMINOPHEN
     Indication: Product used for unknown indication
     Route: 064
  474. TYLENOL WITH CODEINE [Concomitant]
     Active Substance: ACETAMINOPHEN\CODEINE PHOSPHATE
     Indication: Product used for unknown indication
     Route: 064
  475. ACETAMINOPHEN AND CODEINE [Concomitant]
     Active Substance: ACETAMINOPHEN\CODEINE PHOSPHATE
     Indication: Product used for unknown indication
     Route: 064
  476. ACETAMINOPHEN\OXYCODONE HYDROCHLORIDE [Concomitant]
     Active Substance: ACETAMINOPHEN\OXYCODONE HYDROCHLORIDE
     Indication: Product used for unknown indication
     Route: 064
  477. CERTOLIZUMAB PEGOL [Concomitant]
     Active Substance: CERTOLIZUMAB PEGOL
     Indication: Product used for unknown indication
     Route: 064
  478. CIMZIA [Concomitant]
     Active Substance: CERTOLIZUMAB PEGOL
     Indication: Product used for unknown indication
     Route: 064
  479. CIMZIA [Concomitant]
     Active Substance: CERTOLIZUMAB PEGOL
     Route: 064
  480. CORTISONE (HYDROCORTISONE) [Concomitant]
     Active Substance: HYDROCORTISONE
     Indication: Product used for unknown indication
     Route: 064
  481. CORTISONE (HYDROCORTISONE) [Concomitant]
     Active Substance: HYDROCORTISONE
     Route: 064
  482. DICLOFENAC SODIUM [Concomitant]
     Active Substance: DICLOFENAC\DICLOFENAC SODIUM
     Indication: Product used for unknown indication
     Route: 064
  483. FOLIC ACID [Concomitant]
     Active Substance: FOLIC ACID
     Indication: Product used for unknown indication
     Route: 064
  484. PHENYLEPHRINE HYDROCHLORIDE [Concomitant]
     Active Substance: PHENYLEPHRINE HYDROCHLORIDE
     Indication: Product used for unknown indication
     Route: 064
  485. PHTHALYLSULFATHIAZOLE [Concomitant]
     Active Substance: PHTHALYLSULFATHIAZOLE
     Indication: Product used for unknown indication
     Route: 064
  486. PHTHALYLSULFATHIAZOLE [Concomitant]
     Active Substance: PHTHALYLSULFATHIAZOLE
     Route: 064
  487. PHTHALYLSULFATHIAZOLE [Concomitant]
     Active Substance: PHTHALYLSULFATHIAZOLE
     Route: 064
  488. PHTHALYLSULFATHIAZOLE [Concomitant]
     Active Substance: PHTHALYLSULFATHIAZOLE
     Route: 064
  489. PHTHALYLSULFATHIAZOLE [Concomitant]
     Active Substance: PHTHALYLSULFATHIAZOLE
     Route: 064
  490. PHTHALYLSULFATHIAZOLE [Concomitant]
     Active Substance: PHTHALYLSULFATHIAZOLE
     Route: 064
  491. PHTHALYLSULFATHIAZOLE [Concomitant]
     Active Substance: PHTHALYLSULFATHIAZOLE
     Route: 064
  492. PREDNISONE [Concomitant]
     Active Substance: PREDNISONE
     Indication: Product used for unknown indication
     Route: 064
  493. PREDNISONE [Concomitant]
     Active Substance: PREDNISONE
     Route: 064
  494. PSEUDOEPHEDRINE HYDROCHLORIDE\TRIPROLIDINE HYDROCHLORIDE [Concomitant]
     Active Substance: PSEUDOEPHEDRINE HYDROCHLORIDE\TRIPROLIDINE HYDROCHLORIDE
     Indication: Product used for unknown indication
     Route: 064
  495. REMICADE [Concomitant]
     Active Substance: INFLIXIMAB
     Indication: Product used for unknown indication
     Route: 064
  496. REMICADE [Concomitant]
     Active Substance: INFLIXIMAB
     Route: 064
  497. REMICADE [Concomitant]
     Active Substance: INFLIXIMAB
     Route: 064
  498. REMICADE [Concomitant]
     Active Substance: INFLIXIMAB
     Route: 064
  499. REMICADE [Concomitant]
     Active Substance: INFLIXIMAB
     Dosage: POWDER FOR SOLUTION INTRAVENOUS
     Route: 064
  500. REMICADE [Concomitant]
     Active Substance: INFLIXIMAB
     Route: 064
  501. REMICADE [Concomitant]
     Active Substance: INFLIXIMAB
     Route: 064
  502. SULFASALAZINE [Concomitant]
     Active Substance: SULFASALAZINE
     Indication: Product used for unknown indication
     Route: 064
  503. SULFASALAZINE [Concomitant]
     Active Substance: SULFASALAZINE
     Route: 064
  504. ALENDRONATE SODIUM [Concomitant]
     Active Substance: ALENDRONATE SODIUM
     Indication: Product used for unknown indication
     Route: 064
  505. CALCIUM CARBONATE\CALCIUM GLUCONATE\CALCIUM LACTATE [Concomitant]
     Active Substance: CALCIUM CARBONATE\CALCIUM GLUCONATE\CALCIUM LACTATE
     Indication: Product used for unknown indication
     Route: 064
  506. CETIRIZINE HYDROCHLORIDE\PSEUDOEPHEDRINE HYDROCHLORIDE [Concomitant]
     Active Substance: CETIRIZINE HYDROCHLORIDE\PSEUDOEPHEDRINE HYDROCHLORIDE
     Indication: Product used for unknown indication
     Route: 064
  507. DOCONEXENT\ICOSAPENT [Concomitant]
     Active Substance: DOCONEXENT\ICOSAPENT
     Indication: Product used for unknown indication
     Route: 064
  508. AMINOSALICYLATE CALCIUM [Concomitant]
     Active Substance: AMINOSALICYLATE CALCIUM
     Indication: Product used for unknown indication
     Route: 064
  509. CHLORHEXIDINE [Concomitant]
     Active Substance: CHLORHEXIDINE
     Indication: Product used for unknown indication
     Route: 064
  510. CHLORHEXIDINE [Concomitant]
     Active Substance: CHLORHEXIDINE
     Route: 064
  511. CHLORHEXIDINE ACETATE [Concomitant]
     Active Substance: CHLORHEXIDINE ACETATE
     Indication: Product used for unknown indication
     Route: 064
  512. FLUMETHASONE PIVALATE [Concomitant]
     Active Substance: FLUMETHASONE PIVALATE
     Indication: Product used for unknown indication
     Route: 064
  513. FLUMETHASONE PIVALATE [Concomitant]
     Active Substance: FLUMETHASONE PIVALATE
     Route: 064
  514. MORPHINE [Concomitant]
     Active Substance: MORPHINE
     Indication: Product used for unknown indication
     Route: 064
  515. NEOMYCIN [Concomitant]
     Active Substance: NEOMYCIN
     Indication: Product used for unknown indication
     Route: 064
  516. PERIOGARD [Concomitant]
     Active Substance: CHLORHEXIDINE GLUCONATE
     Indication: Product used for unknown indication
     Route: 064
  517. SULFAMETHOXAZOLE [Concomitant]
     Active Substance: SULFAMETHOXAZOLE
     Indication: Product used for unknown indication
     Route: 064
  518. VITAMIN B COMPLEX [Concomitant]
     Active Substance: CYANOCOBALAMIN\DEXPANTHENOL\NIACINAMIDE\PYRIDOXINE HYDROCHLORIDE\RIBOFLAVIN 5^-PHOSPHATE SODIUM\THIA
     Indication: Product used for unknown indication
     Route: 064
  519. ATIVAN [Concomitant]
     Active Substance: LORAZEPAM
     Indication: Product used for unknown indication
     Route: 064
  520. CETIRIZINE HYDROCHLORIDE\PSEUDOEPHEDRINE HYDROCHLORIDE [Concomitant]
     Active Substance: CETIRIZINE HYDROCHLORIDE\PSEUDOEPHEDRINE HYDROCHLORIDE
     Indication: Product used for unknown indication
     Route: 064
  521. DOXYCYCLINE HYCLATE [Concomitant]
     Active Substance: DOXYCYCLINE HYCLATE
     Indication: Product used for unknown indication
     Route: 064
  522. HYALURONIDASE (HUMAN RECOMBINANT) [Concomitant]
     Active Substance: HYALURONIDASE (HUMAN RECOMBINANT)
     Indication: Product used for unknown indication
     Route: 064
  523. HYALURONIDASE (HUMAN RECOMBINANT) [Concomitant]
     Active Substance: HYALURONIDASE (HUMAN RECOMBINANT)
     Route: 064
  524. MESALAMINE [Concomitant]
     Active Substance: MESALAMINE
     Indication: Product used for unknown indication
     Dosage: TABLET (DELAYED AND EXTENDED?RELEASE)
     Route: 064
  525. PANTOPRAZOLE SODIUM [Concomitant]
     Active Substance: PANTOPRAZOLE SODIUM
     Indication: Product used for unknown indication
     Route: 064
  526. PANTOPRAZOLE SODIUM [Concomitant]
     Active Substance: PANTOPRAZOLE SODIUM
     Route: 064
  527. QUETIAPINE [Concomitant]
     Active Substance: QUETIAPINE
     Indication: Product used for unknown indication
     Route: 064

REACTIONS (2)
  - Congenital anomaly [Unknown]
  - Foetal exposure during pregnancy [Unknown]
